FAERS Safety Report 4784842-9 (Version None)
Quarter: 2005Q3

REPORT INFORMATION
  Report Type: 
  Country: None (occurrence: None)
  Receive Date: 20050930
  Receipt Date: 20050920
  Transmission Date: 20060218
  Serious: Yes (Hospitalization)
  Sender: FDA-Public Use
  Company Number: DE-ABBOTT-05P-062-0311719-00

PATIENT
  Age: 65 Year
  Sex: Female

DRUGS (2)
  1. ZEMPLAR [Suspect]
     Indication: HYPERPARATHYROIDISM SECONDARY
     Dosage: 1 VIAL WITH 5 MICROGRAMS EACH
     Route: 042
     Dates: start: 20050901, end: 20050913
  2. ERGOCALCIFEROL [Concomitant]
     Indication: HYPERPARATHYROIDISM SECONDARY
     Dosage: NOT REPORTED

REACTIONS (5)
  - CHOLANGITIS [None]
  - CHOLELITHIASIS [None]
  - HAEMOLYSIS [None]
  - PANCREATITIS [None]
  - SEPSIS [None]
